FAERS Safety Report 4311602-5 (Version None)
Quarter: 2004Q1

REPORT INFORMATION
  Report Type: 
  Country: None (occurrence: None)
  Receive Date: 20040302
  Receipt Date: 20031117
  Transmission Date: 20041129
  Serious: No
  Sender: FDA-Public Use
  Company Number: 200328528BWH

PATIENT
  Age: 79 Year
  Sex: Male
  Weight: 82.5547 kg

DRUGS (4)
  1. LEVITRA [Suspect]
     Indication: ERECTILE DYSFUNCTION
     Dosage: 10 MG, ONCE, ORAL
     Route: 048
     Dates: start: 20031115
  2. CASODEX [Concomitant]
  3. PROSCAR [Concomitant]
  4. VIAGRA [Concomitant]

REACTIONS (3)
  - HEADACHE [None]
  - HEART RATE INCREASED [None]
  - NAUSEA [None]
